FAERS Safety Report 16564166 (Version 1)
Quarter: 2019Q3

REPORT INFORMATION
  Report Type: Spontaneous
  Country: DE (occurrence: DE)
  Receive Date: 20190712
  Receipt Date: 20190712
  Transmission Date: 20191004
  Serious: Yes (Hospitalization, Other)
  Sender: FDA-Public Use
  Company Number: DE-ALK-ABELLO A/S-2019AA002143

PATIENT

DRUGS (1)
  1. ACARIZAX 12 SQ-HDM [Suspect]
     Active Substance: DERMATOPHAGOIDES FARINAE\DERMATOPHAGOIDES PTERONYSSINUS
     Indication: MITE ALLERGY
     Dosage: 12 SQ-HDM
     Route: 060
     Dates: start: 20190606, end: 20190607

REACTIONS (7)
  - Lip swelling [Recovered/Resolved]
  - Feeling abnormal [Recovered/Resolved]
  - Mouth haemorrhage [Recovered/Resolved]
  - Off label use [Recovered/Resolved]
  - Local reaction [Recovered/Resolved]
  - Hypersensitivity [Recovered/Resolved]
  - Product administered to patient of inappropriate age [Recovered/Resolved]

NARRATIVE: CASE EVENT DATE: 20190606
